FAERS Safety Report 14814941 (Version 1)
Quarter: 2018Q2

REPORT INFORMATION
  Report Type: Spontaneous
  Country: GB (occurrence: GB)
  Receive Date: 20180426
  Receipt Date: 20180426
  Transmission Date: 20180711
  Serious: Yes (Disabling, Other)
  Sender: FDA-Public Use
  Company Number: GB-SAOL THERAPEUTICS-2018SAO00599

PATIENT
  Age: 40 Year

DRUGS (2)
  1. BACLOFEN. [Suspect]
     Active Substance: BACLOFEN
     Dosage: UNK
     Route: 037
  2. GABAPENTIN. [Suspect]
     Active Substance: GABAPENTIN

REACTIONS (14)
  - Neuralgia [Unknown]
  - Anxiety [Unknown]
  - Pain in extremity [Unknown]
  - Myalgia [Unknown]
  - Muscle spasticity [Unknown]
  - Overdose [Unknown]
  - Speech disorder [Unknown]
  - Respiration abnormal [Recovered/Resolved]
  - Disability [Unknown]
  - Therapy non-responder [Unknown]
  - Depression [Unknown]
  - Limb injury [Not Recovered/Not Resolved]
  - Scoliosis [Unknown]
  - Somnolence [Unknown]

NARRATIVE: CASE EVENT DATE: 2015
